FAERS Safety Report 4507428-X (Version None)
Quarter: 2004Q4

REPORT INFORMATION
  Report Type: 
  Country: None (occurrence: None)
  Receive Date: 20041118
  Receipt Date: 20041116
  Transmission Date: 20050328
  Serious: Yes (Hospitalization)
  Sender: FDA-Public Use
  Company Number: TPA2004A01250

PATIENT
  Age: 87 Year
  Sex: Female
  Weight: 774.7437 kg

DRUGS (19)
  1. ACTOS [Suspect]
     Indication: DIABETES MELLITUS
     Dosage: 15 MG, 1 IN 1 D, PER ORAL
     Route: 048
     Dates: start: 20031218, end: 20041015
  2. LANTUS (INSULIN GLARGINE) (30 IU (INTERNATIONAL UNIT)) [Concomitant]
  3. COREG (CARDVEDILOL) [Concomitant]
  4. COZAR (LOSARTAN  POTASSIUM) [Concomitant]
  5. FOSAMAX (ALENDORNATE SODIUM) [Concomitant]
  6. METGORMIN (METFORMIN) (500 MILLIGRAM) [Concomitant]
  7. BUSPIRONE (BUSPIRONE) (15 MILLIGRAM) [Concomitant]
  8. BEXTRA (VALDECOXIB) (10 MILLIGRAM) [Concomitant]
  9. FLURAZEPAM (FLURAZEPAM)(15 MILLIGRAM) [Concomitant]
  10. ALPRAZOLAM (ALPRAZOLAM)(25 MILLIGRAM) [Concomitant]
  11. HYDROCODONE (HYDROCODONE) [Concomitant]
  12. TYLENOL PM (TYLENOL PM) [Concomitant]
  13. METAMUCIL (ALL OTHER NON-THERAPEUTIC PRODUCTS) [Concomitant]
  14. MIRALAX [Concomitant]
  15. GINKGO BILOBA (GINKO BILOBA) [Concomitant]
  16. VITAMIN C (ASCORBIC ACID) [Concomitant]
  17. CALTRATE (CALCIUM CARBONATE) [Concomitant]
  18. FOLIC ACID [Concomitant]
  19. OCUVITE (OCUVITE) [Concomitant]

REACTIONS (6)
  - CARDIAC DISORDER [None]
  - DYSPNOEA [None]
  - FALL [None]
  - JOINT SWELLING [None]
  - URINARY INCONTINENCE [None]
  - WEIGHT INCREASED [None]
